FAERS Safety Report 21693516 (Version 2)
Quarter: 2022Q4

REPORT INFORMATION
  Report Type: Spontaneous
  Country: CA (occurrence: None)
  Receive Date: 20221207
  Receipt Date: 20221230
  Transmission Date: 20230113
  Serious: Yes (Death, Hospitalization)
  Sender: FDA-Public Use
  Company Number: CA-ROCHE-3234483

PATIENT
  Age: 75 Year
  Sex: Female

DRUGS (3)
  1. RITUXIMAB [Suspect]
     Active Substance: RITUXIMAB
     Indication: Rheumatoid arthritis
     Route: 042
  2. ACETAMINOPHEN [Concomitant]
     Active Substance: ACETAMINOPHEN
     Indication: Product used for unknown indication
     Route: 048
  3. DIPHENHYDRAMINE [Concomitant]
     Active Substance: DIPHENHYDRAMINE
     Indication: Product used for unknown indication
     Route: 048

REACTIONS (4)
  - COVID-19 [Fatal]
  - Cataract [Fatal]
  - Pneumonia [Fatal]
  - Death [Fatal]
